FAERS Safety Report 5065800-6 (Version None)
Quarter: 2006Q3

REPORT INFORMATION
  Report Type: 
  Country: None (occurrence: None)
  Receive Date: 20060731
  Receipt Date: 20060726
  Transmission Date: 20061208
  Serious: Yes (Other)
  Sender: FDA-Public Use
  Company Number: 2006UW15168

PATIENT
  Age: 79 Year
  Sex: Female

DRUGS (3)
  1. NEXIUM [Suspect]
     Indication: POLYP
     Route: 048
     Dates: start: 20060101
  2. MUSCLE RELAXANT [Concomitant]
  3. THYROID TAB [Concomitant]

REACTIONS (2)
  - DIZZINESS [None]
  - RED BLOOD CELL COUNT DECREASED [None]
